FAERS Safety Report 8452636-9 (Version None)
Quarter: 2012Q2

REPORT INFORMATION
  Report Type: 
  Country: None (occurrence: None)
  Receive Date: 20120620
  Receipt Date: 20120420
  Transmission Date: 20120825
  Serious: No
  Sender: FDA-Public Use
  Company Number: US-VERTEX PHARMACEUTICALS INC.-AE-2012-005737

PATIENT
  Sex: Female
  Weight: 69.008 kg

DRUGS (7)
  1. PEG-INTRON [Concomitant]
     Indication: HEPATITIS C
     Route: 058
     Dates: start: 20120404
  2. ZOFRAN [Concomitant]
     Indication: NAUSEA
     Route: 048
  3. LAMICTAL [Concomitant]
     Indication: CONVULSION
     Route: 048
  4. RIBAVIRIN [Concomitant]
     Indication: HEPATITIS C
     Route: 048
     Dates: start: 20120405
  5. IBUPROFEN [Concomitant]
     Indication: PAIN
     Route: 048
  6. CELEXA [Concomitant]
     Indication: DEPRESSION
     Route: 048
  7. INCIVEK [Suspect]
     Indication: HEPATITIS C
     Route: 048
     Dates: start: 20120405

REACTIONS (5)
  - HAEMORRHOIDS [None]
  - ANORECTAL DISCOMFORT [None]
  - ANAL PRURITUS [None]
  - PROCTALGIA [None]
  - HAEMATOCHEZIA [None]
